FAERS Safety Report 8255470-8 (Version None)
Quarter: 2012Q1

REPORT INFORMATION
  Report Type: 
  Country: None (occurrence: None)
  Receive Date: 20120329
  Receipt Date: 20120319
  Transmission Date: 20120608
  Serious: Yes (Hospitalization)
  Sender: FDA-Public Use
  Company Number: 1232468

PATIENT
  Age: 71 Year
  Sex: Male
  Weight: 36.1517 kg

DRUGS (9)
  1. VINCRISTINE SULFATE [Suspect]
     Indication: NON-HODGKIN'S LYMPHOMA
     Dosage: 2 MG MILLIGRAM(S), INTRAVENOUS
     Route: 042
     Dates: start: 20090325, end: 20090325
  2. NEULASTA [Suspect]
     Indication: NON-HODGKIN'S LYMPHOMA
     Dosage: 6 MG MILLIGRAM(S), SUBCUTANEOUS
     Route: 058
     Dates: start: 20090325, end: 20090402
  3. METOCLOPRAMIDE [Concomitant]
  4. COTRIM [Concomitant]
  5. CYCLOPHOSPHAMIDE [Suspect]
     Indication: NON-HODGKIN'S LYMPHOMA
     Dosage: 1410 MG MILLIGRAM(S), INTRAVENOUS
     Route: 042
     Dates: start: 20090325, end: 20090325
  6. PREDNISONE TAB [Suspect]
     Indication: NON-HODGKIN'S LYMPHOMA
     Dosage: 100 MG MILLIGRAM(S), ORAL
     Route: 048
     Dates: start: 20090325, end: 20090329
  7. TRAMADOL HCL [Concomitant]
  8. GEMCITABINE HYDROCHLORIDE [Suspect]
     Indication: NON-HODGKIN'S LYMPHOMA
     Dosage: 1880 MG MILLIGRAM(S), INTRAVENOUS
     Route: 042
     Dates: start: 20090325, end: 20090401
  9. (RITUXIMAB) [Suspect]
     Indication: NON-HODGKIN'S LYMPHOMA
     Dosage: 705 MG MILLIGRAM(S), INTRAVENOUS
     Route: 042
     Dates: start: 20090325, end: 20090325

REACTIONS (9)
  - ARTERIOSCLEROSIS [None]
  - DYSPNOEA EXERTIONAL [None]
  - FATIGUE [None]
  - THROMBOCYTOPENIA [None]
  - ELECTROCARDIOGRAM ST SEGMENT DEPRESSION [None]
  - CHEST PAIN [None]
  - TROPONIN INCREASED [None]
  - HAEMOGLOBIN DECREASED [None]
  - TOXICITY TO VARIOUS AGENTS [None]
